FAERS Safety Report 7744129-9 (Version None)
Quarter: 2011Q3

REPORT INFORMATION
  Report Type: 
  Country: None (occurrence: None)
  Receive Date: 20110912
  Receipt Date: 20110901
  Transmission Date: 20111222
  Serious: Yes (Other)
  Sender: FDA-Public Use
  Company Number: FR-JNJFOC-20110902509

PATIENT
  Age: 59 Year
  Sex: Male
  Weight: 86 kg

DRUGS (15)
  1. PROPRANOLOL [Concomitant]
  2. KETOPROFEN [Concomitant]
  3. ACETAMINOPHEN [Concomitant]
  4. TAMSULOSIN HCL [Concomitant]
  5. TRAMADOL HCL [Concomitant]
  6. XARELTO [Suspect]
     Indication: PRODUCT USED FOR UNKNOWN INDICATION
     Route: 048
     Dates: start: 20110323, end: 20110411
  7. PRAVASTATIN [Concomitant]
  8. MEPRONIZINE [Concomitant]
  9. LORAZEPAM [Concomitant]
  10. EFFEXOR [Concomitant]
  11. TADENAN [Concomitant]
  12. NEXIUM [Concomitant]
  13. TRIMEPRAZINE TARTRATE [Concomitant]
  14. CLONAZEPAM [Concomitant]
  15. FORLAX [Concomitant]

REACTIONS (2)
  - HAEMATOMA [None]
  - VENOUS THROMBOSIS [None]
